FAERS Safety Report 12273145 (Version 2)
Quarter: 2024Q2

REPORT INFORMATION
  Report Type: Spontaneous
  Country: US (occurrence: US)
  Receive Date: 20160415
  Receipt Date: 20240610
  Transmission Date: 20240716
  Serious: Yes (Other)
  Sender: FDA-Public Use
  Company Number: US-002147023-PHHY2015US134729

PATIENT

DRUGS (7)
  1. JAKAFI [Suspect]
     Active Substance: RUXOLITINIB
     Indication: Polycythaemia vera
     Dosage: 10 MG, BID
     Route: 065
     Dates: start: 201206
  2. JAKAFI [Suspect]
     Active Substance: RUXOLITINIB
     Indication: Chronic myeloid leukaemia
     Dosage: 5 MG, BID
     Route: 065
     Dates: start: 201210
  3. JAKAFI [Suspect]
     Active Substance: RUXOLITINIB
     Dosage: 10 MG ALTERNATING 5 MG, BID
     Route: 065
  4. ANAGRELIDE [Suspect]
     Active Substance: ANAGRELIDE
     Indication: Polycythaemia vera
     Dosage: UNK
     Route: 065
  5. ASPIRIN [Concomitant]
     Active Substance: ASPIRIN
     Indication: Polycythaemia vera
     Dosage: UNK
     Route: 065
  6. DASATINIB [Concomitant]
     Active Substance: DASATINIB
     Indication: Chronic myeloid leukaemia
     Dosage: 100 MG, QD
     Route: 065
     Dates: start: 201107
  7. DASATINIB [Concomitant]
     Active Substance: DASATINIB
     Indication: Polycythaemia vera

REACTIONS (1)
  - Anaemia [Unknown]

NARRATIVE: CASE EVENT DATE: 20120901
